FAERS Safety Report 13967970 (Version 1)
Quarter: 2017Q3

REPORT INFORMATION
  Report Type: Spontaneous
  Country: PT (occurrence: PT)
  Receive Date: 20170914
  Receipt Date: 20170914
  Transmission Date: 20171128
  Serious: Yes (Other)
  Sender: FDA-Public Use
  Company Number: PT-ACCORD-058650

PATIENT
  Age: 70 Year
  Sex: Female

DRUGS (8)
  1. HYGROTON [Concomitant]
     Active Substance: CHLORTHALIDONE
     Dosage: 2 YEARS AGO
  2. ANASTROZOL ACCORD [Suspect]
     Active Substance: ANASTROZOLE
     Indication: BREAST CANCER
     Route: 048
     Dates: start: 20170605, end: 20170705
  3. ZOLPIDEM [Concomitant]
     Active Substance: ZOLPIDEM\ZOLPIDEM TARTRATE
  4. NORVASC [Concomitant]
     Active Substance: AMLODIPINE BESYLATE
  5. OLMETEC [Concomitant]
     Active Substance: OLMESARTAN MEDOXOMIL
     Indication: HYPERTENSION
     Dosage: STRENGTH - 20 MG
  6. EZETROL [Concomitant]
     Active Substance: EZETIMIBE
  7. ESCITALOPRAM [Concomitant]
     Active Substance: ESCITALOPRAM OXALATE
     Route: 048
  8. THYRAX [Concomitant]
     Active Substance: LEVOTHYROXINE

REACTIONS (6)
  - Vomiting [Recovering/Resolving]
  - Speech disorder [Unknown]
  - Dizziness [Recovering/Resolving]
  - Hypoaesthesia [Recovering/Resolving]
  - Visual impairment [Recovering/Resolving]
  - Psychomotor hyperactivity [Unknown]

NARRATIVE: CASE EVENT DATE: 20170605
